FAERS Safety Report 25896716 (Version 1)
Quarter: 2025Q4

REPORT INFORMATION
  Report Type: Spontaneous
  Country: EU (occurrence: EU)
  Receive Date: 20251008
  Receipt Date: 20251008
  Transmission Date: 20260118
  Serious: Yes (Hospitalization, Other)
  Sender: PFIZER
  Company Number: None

PATIENT
  Age: 59 Year
  Sex: Female
  Weight: 65 kg

DRUGS (7)
  1. IBRANCE [Suspect]
     Active Substance: PALBOCICLIB
     Indication: Breast cancer female
     Dosage: 125 MG, DAILY
     Route: 048
     Dates: start: 20250725, end: 20250814
  2. IBRANCE [Suspect]
     Active Substance: PALBOCICLIB
     Dosage: 100 MG, DAILY
     Route: 048
     Dates: start: 20250828, end: 20250909
  3. IBRANCE [Suspect]
     Active Substance: PALBOCICLIB
     Dosage: UNK
     Route: 048
     Dates: start: 20250912
  4. FULVESTRANT [Suspect]
     Active Substance: FULVESTRANT
     Indication: Breast cancer female
     Dosage: 250 MG, DAILY (DAY 1)
     Route: 030
     Dates: start: 20250725
  5. FULVESTRANT [Suspect]
     Active Substance: FULVESTRANT
     Dosage: 250 MG, DAILY (DAY 15)
     Route: 030
     Dates: start: 20250808
  6. FULVESTRANT [Suspect]
     Active Substance: FULVESTRANT
     Dosage: 250 MG, DAILY (DAY 29)
     Route: 030
     Dates: start: 20250822
  7. DENOSUMAB [Suspect]
     Active Substance: DENOSUMAB
     Indication: Metastases to bone
     Dosage: 120 MG, MONTHLY
     Route: 058
     Dates: start: 20250822, end: 20250822

REACTIONS (1)
  - Ischaemic stroke [Recovered/Resolved with Sequelae]

NARRATIVE: CASE EVENT DATE: 20250906
